FAERS Safety Report 22046458 (Version 3)
Quarter: 2023Q1

REPORT INFORMATION
  Report Type: Report from Study
  Country: BR (occurrence: BR)
  Receive Date: 20230228
  Receipt Date: 20230330
  Transmission Date: 20230417
  Serious: Yes (Other)
  Sender: FDA-Public Use
  Company Number: BR-JNJFOC-20230237849

PATIENT
  Age: 28 Year
  Sex: Female
  Weight: 52.8 kg

DRUGS (10)
  1. AMIVANTAMAB [Suspect]
     Active Substance: AMIVANTAMAB
     Indication: Non-small cell lung cancer
     Route: 058
     Dates: start: 20230215, end: 20230215
  2. LEVONORGESTREL AND ETHINYL ESTRADIOL [Concomitant]
     Active Substance: ETHINYL ESTRADIOL\LEVONORGESTREL
     Indication: Prophylaxis
     Route: 048
     Dates: start: 20120101
  3. MORPHINE [Concomitant]
     Active Substance: MORPHINE
     Indication: Chest pain
     Route: 048
     Dates: start: 20230201
  4. MORPHINE [Concomitant]
     Active Substance: MORPHINE
     Indication: Bone pain
  5. GABAPENTIN [Concomitant]
     Active Substance: GABAPENTIN
     Indication: Chest pain
     Route: 048
     Dates: start: 20230201
  6. GABAPENTIN [Concomitant]
     Active Substance: GABAPENTIN
     Indication: Bone pain
  7. LACTULOSE [Concomitant]
     Active Substance: LACTULOSE
     Indication: Constipation
     Route: 048
     Dates: start: 20230201
  8. FOLIC ACID [Concomitant]
     Active Substance: FOLIC ACID
     Indication: Prophylaxis
     Route: 048
     Dates: start: 20230201
  9. ONDANSETRON [Concomitant]
     Active Substance: ONDANSETRON
     Indication: Nausea
     Route: 048
     Dates: start: 20230201, end: 20230212
  10. VITAMIN B12 [Concomitant]
     Active Substance: CYANOCOBALAMIN
     Indication: Prophylaxis
     Route: 030
     Dates: start: 20230203, end: 20230203

REACTIONS (1)
  - Administration related reaction [Recovered/Resolved]

NARRATIVE: CASE EVENT DATE: 20230215
